FAERS Safety Report 9209538 (Version 2)
Quarter: 2013Q2

REPORT INFORMATION
  Report Type: Spontaneous
  Country: GB (occurrence: GB)
  Receive Date: 20130404
  Receipt Date: 20130404
  Transmission Date: 20140414
  Serious: Yes (Hospitalization)
  Sender: FDA-Public Use
  Company Number: GB-TEVA-2006-CZ-00052

PATIENT
  Age: 60 Year
  Sex: Male

DRUGS (3)
  1. METFORMIN [Suspect]
     Route: 065
  2. GLIBENCLAMIDE [Suspect]
     Dosage: 20 DOSES X 5 MG ONCE
     Route: 065
  3. IBUPROFEN [Suspect]
     Route: 065

REACTIONS (13)
  - Overdose [Recovered/Resolved]
  - Lactic acidosis [Recovered/Resolved]
  - Apnoea [Recovered/Resolved]
  - Ventricular fibrillation [Recovered/Resolved]
  - Abdominal pain [None]
  - Agitation [None]
  - Somnolence [None]
  - Body temperature decreased [None]
  - Anuria [None]
  - Poisoning [None]
  - Continuous haemodiafiltration [None]
  - Therapeutic response decreased [None]
  - Vascular resistance systemic decreased [None]
